FAERS Safety Report 25571237 (Version 1)
Quarter: 2025Q3

REPORT INFORMATION
  Report Type: Spontaneous
  Country: US (occurrence: US)
  Receive Date: 20250717
  Receipt Date: 20250717
  Transmission Date: 20251021
  Serious: Yes (Other)
  Sender: HISAMITSU PHARMACEUTICAL CO., INC.
  Company Number: US-HISAMITSU PHARMACEUTICAL CO., INC.-2025-NOV-US001262

PATIENT
  Sex: Male

DRUGS (4)
  1. SECUADO [Suspect]
     Active Substance: ASENAPINE
     Indication: Schizoaffective disorder
     Dosage: 7.6 MG, DAILY
     Route: 062
     Dates: start: 202507
  2. SECUADO [Suspect]
     Active Substance: ASENAPINE
     Dosage: 5.7 MG, DAILY
     Route: 062
     Dates: start: 20250529, end: 202507
  3. SECUADO [Suspect]
     Active Substance: ASENAPINE
     Dosage: LOWEST DOSE, DAILY
     Route: 062
     Dates: start: 20250515, end: 20250529
  4. NICOTINE [Concomitant]
     Active Substance: NICOTINE
     Indication: Product used for unknown indication
     Route: 062

REACTIONS (7)
  - Oculogyric crisis [Recovered/Resolved]
  - Behaviour disorder [Recovered/Resolved]
  - Self-destructive behaviour [Recovered/Resolved]
  - Thirst [Not Recovered/Not Resolved]
  - Blood sodium decreased [Recovered/Resolved]
  - Body temperature increased [Not Recovered/Not Resolved]
  - Weight increased [Not Recovered/Not Resolved]

NARRATIVE: CASE EVENT DATE: 20250101
